FAERS Safety Report 19932248 (Version 1)
Quarter: 2021Q4

REPORT INFORMATION
  Report Type: Spontaneous
  Country: US (occurrence: US)
  Receive Date: 20211007
  Receipt Date: 20211007
  Transmission Date: 20220303
  Serious: No
  Sender: FDA-Public Use
  Company Number: None

PATIENT
  Age: 52 Year
  Sex: Male

DRUGS (1)
  1. REGEN-COV [Suspect]
     Active Substance: CASIRIVIMAB\IMDEVIMAB
     Indication: SARS-CoV-2 test positive
     Dosage: ?          OTHER FREQUENCY:ONCE;
     Route: 041

REACTIONS (5)
  - Dizziness [None]
  - Musculoskeletal stiffness [None]
  - Peripheral coldness [None]
  - Hypoaesthesia [None]
  - Pallor [None]

NARRATIVE: CASE EVENT DATE: 20211007
